FAERS Safety Report 8846987 (Version 2)
Quarter: 2012Q4

REPORT INFORMATION
  Report Type: 
  Country: US (occurrence: US)
  Receive Date: 20121018
  Receipt Date: 20121031
  Transmission Date: 20130627
  Serious: Yes (Death, Hospitalization, Other)
  Sender: FDA-Public Use
  Company Number: US-BRISTOL-MYERS SQUIBB COMPANY-17047085

PATIENT
  Age: 64 Year
  Sex: Male

DRUGS (1)
  1. BARACLUDE [Suspect]
     Indication: HEPATITIS B
     Route: 048

REACTIONS (4)
  - Hepatocellular carcinoma [Fatal]
  - Ascites [Unknown]
  - Hepatic cirrhosis [Unknown]
  - Hepatitis B [Unknown]
